FAERS Safety Report 17919581 (Version 1)
Quarter: 2020Q2

REPORT INFORMATION
  Report Type: Spontaneous
  Country: ES (occurrence: ES)
  Receive Date: 20200619
  Receipt Date: 20200619
  Transmission Date: 20200714
  Serious: Yes (Hospitalization)
  Sender: FDA-Public Use
  Company Number: ES-PURDUE-GBR-2020-0077258

PATIENT
  Age: 82 Year
  Sex: Male

DRUGS (2)
  1. MST CONTINUS [Suspect]
     Active Substance: MORPHINE SULFATE
     Indication: PAIN
     Dosage: 15 MG, Q12H (1-0-1)
     Route: 048
     Dates: start: 20200519, end: 20200529
  2. ABSTRAL [Suspect]
     Active Substance: FENTANYL CITRATE
     Indication: PAIN
     Dosage: 100 MCG, Q8H (1-1-1)
     Route: 060
     Dates: start: 20200519, end: 20200529

REACTIONS (4)
  - Constipation [Recovered/Resolved]
  - Hypocoagulable state [Recovered/Resolved]
  - Mixed liver injury [Unknown]
  - Hyperbilirubinaemia [Not Recovered/Not Resolved]

NARRATIVE: CASE EVENT DATE: 20200521
